FAERS Safety Report 10562276 (Version 1)
Quarter: 2014Q4

REPORT INFORMATION
  Report Type: Spontaneous
  Country: US (occurrence: None)
  Receive Date: 20141031
  Receipt Date: 20141031
  Transmission Date: 20150529
  Serious: Yes (Other)
  Sender: FDA-Public Use
  Company Number: VIT-2014-01957

PATIENT
  Age: 41 Year
  Sex: Female

DRUGS (1)
  1. VELPHORO [Suspect]
     Active Substance: FERRIC OXYHYDROXIDE
     Indication: HYPERPHOSPHATAEMIA
     Route: 048
     Dates: start: 201406, end: 201409

REACTIONS (2)
  - Transferrin saturation increased [None]
  - Haemoglobin increased [None]

NARRATIVE: CASE EVENT DATE: 2014
